FAERS Safety Report 14377505 (Version 1)
Quarter: 2018Q1

REPORT INFORMATION
  Report Type: Spontaneous
  Country: GB (occurrence: GB)
  Receive Date: 20180111
  Receipt Date: 20180111
  Transmission Date: 20180509
  Serious: Yes (Other)
  Sender: FDA-Public Use
  Company Number: GB-PFIZER INC-2018008470

PATIENT
  Age: 46 Year
  Sex: Female
  Weight: 87 kg

DRUGS (11)
  1. NITROFURANTOIN. [Concomitant]
     Active Substance: NITROFURANTOIN
     Dosage: 4 DF, DAILY
     Dates: start: 20171019, end: 20171022
  2. SALBUTAMOL [Concomitant]
     Active Substance: ALBUTEROL
     Dosage: 2 DF, DAILY
     Route: 055
     Dates: start: 20171207
  3. LEVOTHYROXINE. [Concomitant]
     Active Substance: LEVOTHYROXINE
     Dosage: 1 DF, 1X/DAY EACH MORNING
     Dates: start: 20141022, end: 20171019
  4. AMOXICILLIN. [Concomitant]
     Active Substance: AMOXICILLIN
     Dosage: UNK
     Dates: start: 20171205
  5. DOXYCYCLINE MONOHYDRATE [Suspect]
     Active Substance: DOXYCYCLINE
     Dosage: 1 DF, DAILY
     Dates: start: 201712, end: 20171212
  6. PREDNISOLONE. [Concomitant]
     Active Substance: PREDNISOLONE
     Dosage: 8 DF, 1X/DAY EEERY MORNING .
     Dates: start: 20171205, end: 20171210
  7. CO-AMOXICLAV /02043401/ [Concomitant]
     Active Substance: AMOXICILLIN\CLAVULANIC ACID
     Dosage: 3 DF, DAILY FOR 7 DAYS
     Dates: start: 20171211
  8. DOXYCYCLINE MONOHYDRATE [Suspect]
     Active Substance: DOXYCYCLINE
     Dosage: 2 DF, DAILY
     Dates: start: 20171205, end: 201712
  9. METFORMIN [Concomitant]
     Active Substance: METFORMIN HYDROCHLORIDE
     Dosage: 3 DF, DAILY
     Dates: start: 20141022, end: 20171019
  10. FLUCONAZOLE. [Concomitant]
     Active Substance: FLUCONAZOLE
     Indication: CANDIDA INFECTION
     Dosage: 1 DF, UNK
     Dates: start: 20171019, end: 20171020
  11. CLARITHROMYCIN. [Concomitant]
     Active Substance: CLARITHROMYCIN
     Dosage: 2 DF, DAILY
     Dates: start: 20171201, end: 20171208

REACTIONS (4)
  - Swelling face [Unknown]
  - Vomiting [Unknown]
  - Swollen tongue [Unknown]
  - Diarrhoea [Unknown]
